FAERS Safety Report 23656443 (Version 3)
Quarter: 2024Q2

REPORT INFORMATION
  Report Type: Spontaneous
  Country: IT (occurrence: IT)
  Receive Date: 20240321
  Receipt Date: 20240404
  Transmission Date: 20240716
  Serious: Yes (Hospitalization, Other)
  Sender: FDA-Public Use
  Company Number: IT-MLMSERVICE-20240304-4863290-1

PATIENT
  Age: 46 Year
  Sex: Male

DRUGS (20)
  1. AZITHROMYCIN [Interacting]
     Active Substance: AZITHROMYCIN
     Indication: Antibiotic therapy
     Dosage: 500 MILLIGRAM, ONCE A DAY
     Route: 048
  2. LEVOFLOXACIN [Interacting]
     Active Substance: LEVOFLOXACIN
     Indication: Antibiotic therapy
     Dosage: 500 MILLIGRAM, ONCE A DAY
     Route: 065
  3. LEVOFLOXACIN [Interacting]
     Active Substance: LEVOFLOXACIN
     Indication: Evidence based treatment
  4. MEROPENEM [Interacting]
     Active Substance: MEROPENEM
     Indication: Antibiotic therapy
     Dosage: 2 GRAM, 3 TIMES A DAY
     Route: 042
  5. PIPERACILLIN SODIUM\TAZOBACTAM SODIUM [Interacting]
     Active Substance: PIPERACILLIN SODIUM\TAZOBACTAM SODIUM
     Indication: Antibiotic therapy
     Dosage: 16 GRAM, ONCE A DAY
     Route: 065
  6. AMIKACIN [Interacting]
     Active Substance: AMIKACIN
     Indication: Antibiotic therapy
     Dosage: 1 GRAM, ONCE A DAY
     Route: 042
  7. CEPHALEXIN [Interacting]
     Active Substance: CEPHALEXIN
     Indication: Antibiotic therapy
     Dosage: 2 GRAM, 3 TIMES A DAY
     Route: 065
  8. CEPHALEXIN [Interacting]
     Active Substance: CEPHALEXIN
     Dosage: 2 GRAM, 3 TIMES A DAY
     Route: 048
  9. EVEROLIMUS [Interacting]
     Active Substance: EVEROLIMUS
     Indication: Immunosuppressant drug therapy
     Dosage: 1.5 MILLIGRAM, TWO TIMES A DAY
     Route: 065
     Dates: start: 2011
  10. EVEROLIMUS [Interacting]
     Active Substance: EVEROLIMUS
     Indication: Prophylaxis against transplant rejection
  11. FOSFOMYCIN [Interacting]
     Active Substance: FOSFOMYCIN
     Indication: Antibiotic therapy
     Dosage: 16 GRAM, ONCE A DAY
     Route: 065
     Dates: start: 2011
  12. MYCOPHENOLATE MOFETIL [Interacting]
     Active Substance: MYCOPHENOLATE MOFETIL
     Indication: Immunosuppressant drug therapy
     Dosage: 1500 MILLIGRAM, ONCE A DAY
     Route: 065
     Dates: start: 2011
  13. MYCOPHENOLATE MOFETIL [Interacting]
     Active Substance: MYCOPHENOLATE MOFETIL
     Indication: Prophylaxis against transplant rejection
     Dosage: 500 MG + 1000 MG/DAY
     Route: 065
  14. SULFAMETHOXAZOLE\TRIMETHOPRIM [Interacting]
     Active Substance: SULFAMETHOXAZOLE\TRIMETHOPRIM
     Indication: Product used for unknown indication
     Dosage: 1 DOSAGE FORM, TWO TIMES A DAY
     Route: 065
  15. SULFAMETHOXAZOLE\TRIMETHOPRIM [Interacting]
     Active Substance: SULFAMETHOXAZOLE\TRIMETHOPRIM
     Dosage: UNK UNK, TWO TIMES A DAY
     Route: 065
  16. INSULIN GLARGINE [Concomitant]
     Active Substance: INSULIN GLARGINE
     Indication: Type 1 diabetes mellitus
     Dosage: UNK
     Route: 065
  17. CHOLECALCIFEROL [Concomitant]
     Active Substance: CHOLECALCIFEROL
     Indication: Osteoporosis
     Dosage: UNK
     Route: 065
  18. CALCIUM CARBONATE [Concomitant]
     Active Substance: CALCIUM CARBONATE
     Indication: Osteoporosis
     Dosage: UNK
     Route: 065
  19. INSULIN LISPRO [Concomitant]
     Active Substance: INSULIN LISPRO
     Indication: Type 1 diabetes mellitus
     Dosage: UNK
     Route: 065
  20. OSELTAMIVIR [Concomitant]
     Active Substance: OSELTAMIVIR
     Indication: H1N1 influenza
     Dosage: UNK
     Route: 065

REACTIONS (5)
  - Immunosuppressant drug level decreased [Recovered/Resolved]
  - Pneumonia [Unknown]
  - H1N1 influenza [Unknown]
  - Drug interaction [Recovered/Resolved]
  - Drug ineffective [Unknown]
